FAERS Safety Report 5113809-6 (Version None)
Quarter: 2006Q3

REPORT INFORMATION
  Report Type: 
  Country: None (occurrence: None)
  Receive Date: 20060925
  Receipt Date: 20060525
  Transmission Date: 20061208
  Serious: Yes (Hospitalization, Disabling)
  Sender: FDA-Public Use
  Company Number: US-ROCHE-449770

PATIENT
  Sex: Male

DRUGS (2)
  1. ACCUTANE [Suspect]
     Indication: DRUG USE FOR UNKNOWN INDICATION
     Route: 048
     Dates: start: 20020415
  2. ACCUTANE [Suspect]
     Route: 048
     Dates: start: 20020513

REACTIONS (10)
  - ANHEDONIA [None]
  - ANXIETY [None]
  - BLOOD THYROID STIMULATING HORMONE DECREASED [None]
  - GLOMERULONEPHRITIS PROLIFERATIVE [None]
  - INJURY [None]
  - NEPHROLITHIASIS [None]
  - NORMOCHROMIC NORMOCYTIC ANAEMIA [None]
  - RENAL DISORDER [None]
  - RENAL FAILURE CHRONIC [None]
  - VITAMIN B12 DEFICIENCY [None]
